FAERS Safety Report 13416214 (Version 2)
Quarter: 2017Q3

REPORT INFORMATION
  Report Type: Spontaneous
  Country: US (occurrence: US)
  Receive Date: 20170406
  Receipt Date: 20170929
  Transmission Date: 20171127
  Serious: Yes (Other)
  Sender: FDA-Public Use
  Company Number: US-JNJFOC-20170404975

PATIENT
  Sex: Female

DRUGS (6)
  1. LEVAQUIN [Suspect]
     Active Substance: LEVOFLOXACIN
     Indication: OROPHARYNGEAL PAIN
     Route: 048
     Dates: start: 2012
  2. LEVAQUIN [Suspect]
     Active Substance: LEVOFLOXACIN
     Indication: NAUSEA
     Route: 048
     Dates: start: 2012
  3. LEVAQUIN [Suspect]
     Active Substance: LEVOFLOXACIN
     Indication: COUGH
     Route: 048
     Dates: start: 2012
  4. LEVAQUIN [Suspect]
     Active Substance: LEVOFLOXACIN
     Indication: CHILLS
     Route: 048
     Dates: start: 2012
  5. LEVAQUIN [Suspect]
     Active Substance: LEVOFLOXACIN
     Indication: ASTHENIA
     Route: 048
     Dates: start: 2012
  6. LEVAQUIN [Suspect]
     Active Substance: LEVOFLOXACIN
     Indication: PYREXIA
     Route: 048
     Dates: start: 2012

REACTIONS (2)
  - Aortic dissection [Unknown]
  - Aortic aneurysm [Unknown]
